FAERS Safety Report 11741363 (Version 2)
Quarter: 2016Q1

REPORT INFORMATION
  Report Type: Spontaneous
  Country: US (occurrence: US)
  Receive Date: 20151116
  Receipt Date: 20160119
  Transmission Date: 20160525
  Serious: Yes (Other)
  Sender: FDA-Public Use
  Company Number: US-ASTRAZENECA-2015SF07783

PATIENT
  Age: 58 Year
  Sex: Male
  Weight: 131.5 kg

DRUGS (13)
  1. BRILINTA [Suspect]
     Active Substance: TICAGRELOR
     Indication: ACUTE CORONARY SYNDROME
     Route: 048
     Dates: start: 20151022
  2. VITAMIN D [Concomitant]
     Active Substance: CHOLECALCIFEROL
  3. ASPIRIN. [Concomitant]
     Active Substance: ASPIRIN
     Dosage: 81, QD
  4. MELOXICAM. [Concomitant]
     Active Substance: MELOXICAM
  5. CRESTOR [Concomitant]
     Active Substance: ROSUVASTATIN CALCIUM
     Route: 048
  6. MAGNESIUM OXIDE. [Concomitant]
     Active Substance: MAGNESIUM OXIDE
     Route: 048
  7. LOPRESSOR [Concomitant]
     Active Substance: METOPROLOL TARTRATE
  8. HYDROCHLOROTHIAZIDE. [Concomitant]
     Active Substance: HYDROCHLOROTHIAZIDE
  9. BRILINTA [Suspect]
     Active Substance: TICAGRELOR
     Indication: PERCUTANEOUS CORONARY INTERVENTION
     Dosage: 180 MG
     Route: 048
  10. BRILINTA [Suspect]
     Active Substance: TICAGRELOR
     Indication: PERCUTANEOUS CORONARY INTERVENTION
     Route: 048
     Dates: start: 20151022
  11. BRILINTA [Suspect]
     Active Substance: TICAGRELOR
     Indication: ACUTE CORONARY SYNDROME
     Dosage: 180 MG
     Route: 048
  12. LASIX [Concomitant]
     Active Substance: FUROSEMIDE
  13. PLAVIX [Concomitant]
     Active Substance: CLOPIDOGREL BISULFATE

REACTIONS (5)
  - Vomiting [Unknown]
  - Rash generalised [Recovered/Resolved]
  - Hypersensitivity [Recovered/Resolved]
  - Erythema [Unknown]
  - Nausea [Unknown]

NARRATIVE: CASE EVENT DATE: 20151022
